FAERS Safety Report 5709451-6 (Version None)
Quarter: 2008Q2

REPORT INFORMATION
  Report Type: 
  Country: None (occurrence: None)
  Receive Date: 20080418
  Receipt Date: 20080409
  Transmission Date: 20081010
  Serious: Yes (Other)
  Sender: FDA-Public Use
  Company Number: US-JNJFOC-20080403438

PATIENT
  Sex: Female

DRUGS (4)
  1. MONISTAT 3 OVULE COMBINATION PACK PLUS EXTERNAL CREAM [Suspect]
     Route: 067
  2. MONISTAT 3 OVULE COMBINATION PACK PLUS EXTERNAL CREAM [Suspect]
     Indication: FUNGAL INFECTION
     Route: 067
  3. MONISTAT 3 OVULE COMBINATION PACK PLUS EXTERNAL CREAM [Suspect]
     Route: 061
  4. MONISTAT 3 OVULE COMBINATION PACK PLUS EXTERNAL CREAM [Suspect]
     Route: 061

REACTIONS (3)
  - APPLICATION SITE BURN [None]
  - PAIN [None]
  - SWELLING [None]
